FAERS Safety Report 22959036 (Version 8)
Quarter: 2024Q1

REPORT INFORMATION
  Report Type: Spontaneous
  Country: JP (occurrence: JP)
  Receive Date: 20230919
  Receipt Date: 20240311
  Transmission Date: 20240410
  Serious: Yes (Hospitalization)
  Sender: FDA-Public Use
  Company Number: JP-JNJFOC-20230934605

PATIENT
  Age: 79 Year
  Sex: Female
  Weight: 51.3 kg

DRUGS (7)
  1. TRABECTEDIN [Suspect]
     Active Substance: TRABECTEDIN
     Indication: Leiomyosarcoma metastatic
     Route: 041
     Dates: start: 20230509
  2. TRABECTEDIN [Suspect]
     Active Substance: TRABECTEDIN
     Route: 041
     Dates: start: 20230711
  3. NOVOLIN N [Concomitant]
     Active Substance: INSULIN HUMAN
     Dates: start: 20230509, end: 20230829
  4. VOGLIBOSE [Concomitant]
     Active Substance: VOGLIBOSE
     Dates: start: 20230216
  5. LINAGLIPTIN [Concomitant]
     Active Substance: LINAGLIPTIN
     Dates: start: 20230605
  6. IMIDAPRIL HYDROCHLORIDE [Concomitant]
     Active Substance: IMIDAPRIL HYDROCHLORIDE
  7. CARVEDILOL [Concomitant]
     Active Substance: CARVEDILOL
     Dates: start: 20230210

REACTIONS (4)
  - Colitis ischaemic [Recovered/Resolved]
  - Ileal perforation [Recovering/Resolving]
  - Cataract operation [Unknown]
  - Gamma-glutamyltransferase increased [Unknown]

NARRATIVE: CASE EVENT DATE: 20230620
